FAERS Safety Report 16006956 (Version 1)
Quarter: 2019Q1

REPORT INFORMATION
  Report Type: Spontaneous
  Country: FR (occurrence: FR)
  Receive Date: 20190226
  Receipt Date: 20190226
  Transmission Date: 20190418
  Serious: Yes (Other)
  Sender: FDA-Public Use
  Company Number: FR-ALLERGAN-1907601US

PATIENT
  Age: 30 Year
  Sex: Female

DRUGS (3)
  1. TRIPTORELIN PAMOATE - BP [Suspect]
     Active Substance: TRIPTORELIN PAMOATE
     Indication: IN VITRO FERTILISATION
     Dosage: UNK
     Route: 065
     Dates: start: 20181103
  2. OVITRELLE [Suspect]
     Active Substance: CHORIOGONADOTROPIN ALFA
     Indication: IN VITRO FERTILISATION
     Dosage: UNK
     Route: 065
     Dates: start: 20181202
  3. MENOTROPHIN [Suspect]
     Active Substance: MENOTROPINS
     Indication: IN VITRO FERTILISATION
     Dosage: 150, UNK
     Route: 065
     Dates: start: 20181122, end: 20181129

REACTIONS (10)
  - Nausea [Unknown]
  - Abdominal discomfort [Unknown]
  - Off label use [Unknown]
  - Abdominal pain lower [Unknown]
  - Dizziness [Unknown]
  - Back pain [Unknown]
  - Insomnia [Unknown]
  - Ovarian hyperstimulation syndrome [Unknown]
  - Breast pain [Unknown]
  - Fatigue [Unknown]

NARRATIVE: CASE EVENT DATE: 20190110
